FAERS Safety Report 18539025 (Version 1)
Quarter: 2020Q4

REPORT INFORMATION
  Report Type: Spontaneous
  Country: US (occurrence: US)
  Receive Date: 20201123
  Receipt Date: 20201123
  Transmission Date: 20210114
  Serious: Yes (Hospitalization)
  Sender: FDA-Public Use
  Company Number: None

PATIENT
  Age: 22 Year
  Sex: Male
  Weight: 52.62 kg

DRUGS (6)
  1. LAMOTRIGINE 100MG ER 24HR TABLET QD [Concomitant]
     Active Substance: LAMOTRIGINE
  2. UCERIS [Concomitant]
     Active Substance: BUDESONIDE
  3. REMICADE [Suspect]
     Active Substance: INFLIXIMAB
  4. INJECTAFER [Concomitant]
     Active Substance: FERRIC CARBOXYMALTOSE
  5. LEVETIRACETAM 500MG SR 24HR TABLET QOD [Concomitant]
     Active Substance: LEVETIRACETAM
  6. PREDNISONE. [Concomitant]
     Active Substance: PREDNISONE

REACTIONS (4)
  - Abdominal pain [None]
  - Proctalgia [None]
  - Incontinence [None]
  - Seizure [None]

NARRATIVE: CASE EVENT DATE: 20191029
